FAERS Safety Report 10091735 (Version 3)
Quarter: 2014Q2

REPORT INFORMATION
  Report Type: Spontaneous
  Country: KR (occurrence: KR)
  Receive Date: 20140421
  Receipt Date: 20140430
  Transmission Date: 20141212
  Serious: Yes (Hospitalization)
  Sender: FDA-Public Use
  Company Number: KR-ABBVIE-14P-286-1227826-00

PATIENT
  Age: 11 Year
  Sex: Female

DRUGS (6)
  1. VALPROIC ACID [Suspect]
     Indication: MAJOR DEPRESSION
     Dosage: FREQUENCY UNKNOWN
     Route: 065
  2. LAMOTRIGINE [Interacting]
     Indication: MAJOR DEPRESSION
     Route: 065
  3. FLUOXETIN [Concomitant]
     Indication: MAJOR DEPRESSION
     Dosage: UNKNOWN
  4. RISPERIDONE [Concomitant]
     Indication: MAJOR DEPRESSION
     Dosage: UNKNOWN
  5. ARIPIPRAZOLE [Concomitant]
     Indication: MAJOR DEPRESSION
     Dosage: UNKNOWN
  6. ARIPIPRAZOLE [Concomitant]
     Dosage: UNKNOWN

REACTIONS (15)
  - Toxic epidermal necrolysis [Recovering/Resolving]
  - Drug interaction [Unknown]
  - Rash maculo-papular [Unknown]
  - Erythema [Unknown]
  - Pyrexia [Unknown]
  - Pruritus [Unknown]
  - Mouth ulceration [Unknown]
  - Oral pain [Unknown]
  - Conjunctival hyperaemia [Unknown]
  - Nikolsky^s sign [Unknown]
  - Blister [Unknown]
  - Purpura [Unknown]
  - C-reactive protein increased [Unknown]
  - Scab [Unknown]
  - Pyuria [Unknown]
